FAERS Safety Report 9267227 (Version 1)
Quarter: 2013Q2

REPORT INFORMATION
  Report Type: Spontaneous
  Country: US (occurrence: US)
  Receive Date: 20130502
  Receipt Date: 20130502
  Transmission Date: 20140414
  Serious: Yes (Other)
  Sender: FDA-Public Use
  Company Number: US-TEVA-401838USA

PATIENT
  Sex: Male

DRUGS (3)
  1. TRAMADOL [Suspect]
  2. INFLIXIMAB [Concomitant]
  3. METHOTREXATE [Concomitant]
     Indication: SURGERY

REACTIONS (1)
  - Hepatic cirrhosis [Unknown]
